FAERS Safety Report 5341497-2 (Version None)
Quarter: 2007Q2

REPORT INFORMATION
  Report Type: 
  Country: None (occurrence: None)
  Receive Date: 20070601
  Receipt Date: 20070523
  Transmission Date: 20071010
  Serious: Yes (Other)
  Sender: FDA-Public Use
  Company Number: PHBS2007BE07905

PATIENT
  Sex: Male

DRUGS (3)
  1. DIOVAN [Suspect]
     Indication: HYPERTENSION
     Dosage: 160 MG/DAY
     Route: 048
     Dates: start: 20060601
  2. ASAFLOW [Concomitant]
  3. LOGIMAT [Concomitant]

REACTIONS (9)
  - EOSINOPHIL COUNT INCREASED [None]
  - FLUSHING [None]
  - HEPATIC CYST [None]
  - HYPERSENSITIVITY [None]
  - HYPERTENSION [None]
  - INFECTION [None]
  - PRURITUS [None]
  - RASH [None]
  - TACHYCARDIA [None]
